FAERS Safety Report 7565483-7 (Version None)
Quarter: 2011Q2

REPORT INFORMATION
  Report Type: 
  Country: None (occurrence: None)
  Receive Date: 20110623
  Receipt Date: 20110615
  Transmission Date: 20111010
  Serious: No
  Sender: FDA-Public Use
  Company Number: US-BIOGENIDEC-2011BI022243

PATIENT
  Age: 60 Year
  Sex: Female

DRUGS (11)
  1. VERPAMIL HCL [Concomitant]
     Indication: HYPERTENSION
  2. TIZANIDINE HCL [Concomitant]
     Indication: MUSCLE TIGHTNESS
  3. VESICARE [Concomitant]
     Indication: HYPERTONIC BLADDER
  4. PROVIGIL [Concomitant]
     Indication: FATIGUE
  5. TYSABRI [Suspect]
     Indication: MULTIPLE SCLEROSIS
     Route: 042
     Dates: start: 20110609
  6. TRAZODONE HCL [Concomitant]
     Indication: DEPRESSION
  7. LYRICA [Concomitant]
     Indication: MUSCLE TIGHTNESS
  8. ATENOLOL [Concomitant]
     Indication: HYPERTENSION
  9. BACLOFEN [Concomitant]
     Indication: MUSCLE SPASMS
  10. CYMBALTA [Concomitant]
     Indication: DEPRESSION
     Route: 048
  11. HYDROCHLOROTHIAZIDE [Concomitant]
     Indication: FLUID RETENTION

REACTIONS (6)
  - MEMORY IMPAIRMENT [None]
  - NERVOUSNESS [None]
  - BALANCE DISORDER [None]
  - MUSCULOSKELETAL STIFFNESS [None]
  - MUSCULAR WEAKNESS [None]
  - FATIGUE [None]
